FAERS Safety Report 9253997 (Version 1)
Quarter: 2013Q1

REPORT INFORMATION
  Report Type: Spontaneous
  Country: US (occurrence: None)
  Receive Date: 20121203
  Receipt Date: 20121203
  Transmission Date: 20140127
  Serious: Yes (Hospitalization, Other)
  Sender: FDA-Public Use
  Company Number: 2011SP059164

PATIENT
  Age: 21 Year
  Sex: Female
  Weight: 86.2 kg

DRUGS (1)
  1. NUVARING [Suspect]
     Indication: CONTRACEPTION
     Dates: start: 200903, end: 201001

REACTIONS (13)
  - Pulmonary embolism [None]
  - Chest pain [None]
  - Thyroid therapy [None]
  - Incorrect drug administration duration [None]
  - Cervical dysplasia [None]
  - Ovarian cyst [None]
  - Musculoskeletal chest pain [None]
  - Oropharyngeal pain [None]
  - Headache [None]
  - Bronchitis [None]
  - Abdominal pain [None]
  - Road traffic accident [None]
  - Back pain [None]
